FAERS Safety Report 25822469 (Version 1)
Quarter: 2025Q3

REPORT INFORMATION
  Report Type: Spontaneous
  Country: US (occurrence: US)
  Receive Date: 20250919
  Receipt Date: 20250919
  Transmission Date: 20251020
  Serious: Yes (Hospitalization)
  Sender: MYLAN
  Company Number: US-MYLANLABS-2025M1078531

PATIENT
  Age: 66 Year
  Sex: Male

DRUGS (52)
  1. HALOPERIDOL DECANOATE [Suspect]
     Active Substance: HALOPERIDOL DECANOATE
     Indication: Agitation postoperative
  2. HALOPERIDOL DECANOATE [Suspect]
     Active Substance: HALOPERIDOL DECANOATE
     Indication: Postoperative delirium
     Route: 030
  3. HALOPERIDOL DECANOATE [Suspect]
     Active Substance: HALOPERIDOL DECANOATE
     Route: 030
  4. HALOPERIDOL DECANOATE [Suspect]
     Active Substance: HALOPERIDOL DECANOATE
  5. DEXMEDETOMIDINE [Suspect]
     Active Substance: DEXMEDETOMIDINE
     Indication: Postoperative delirium
  6. DEXMEDETOMIDINE [Suspect]
     Active Substance: DEXMEDETOMIDINE
     Route: 065
  7. DEXMEDETOMIDINE [Suspect]
     Active Substance: DEXMEDETOMIDINE
     Route: 065
  8. DEXMEDETOMIDINE [Suspect]
     Active Substance: DEXMEDETOMIDINE
  9. RISPERIDONE [Suspect]
     Active Substance: RISPERIDONE
     Indication: Agitation postoperative
     Dosage: 0.5 MILLIGRAM, BID
  10. RISPERIDONE [Suspect]
     Active Substance: RISPERIDONE
     Indication: Postoperative delirium
     Dosage: 0.5 MILLIGRAM, BID
  11. RISPERIDONE [Suspect]
     Active Substance: RISPERIDONE
     Dosage: 0.5 MILLIGRAM, BID
     Route: 048
  12. RISPERIDONE [Suspect]
     Active Substance: RISPERIDONE
     Dosage: 0.5 MILLIGRAM, BID
     Route: 048
  13. RISPERIDONE [Suspect]
     Active Substance: RISPERIDONE
     Dosage: 1 MILLIGRAM, BID
  14. RISPERIDONE [Suspect]
     Active Substance: RISPERIDONE
     Dosage: 1 MILLIGRAM, BID
  15. RISPERIDONE [Suspect]
     Active Substance: RISPERIDONE
     Dosage: 1 MILLIGRAM, BID
     Route: 048
  16. RISPERIDONE [Suspect]
     Active Substance: RISPERIDONE
     Dosage: 1 MILLIGRAM, BID
     Route: 048
  17. RISPERIDONE [Suspect]
     Active Substance: RISPERIDONE
  18. RISPERIDONE [Suspect]
     Active Substance: RISPERIDONE
     Route: 048
  19. RISPERIDONE [Suspect]
     Active Substance: RISPERIDONE
  20. RISPERIDONE [Suspect]
     Active Substance: RISPERIDONE
     Route: 048
  21. ASPIRIN [Concomitant]
     Active Substance: ASPIRIN
     Indication: Product used for unknown indication
     Dosage: 81 MILLIGRAM, QD
  22. ASPIRIN [Concomitant]
     Active Substance: ASPIRIN
     Dosage: 81 MILLIGRAM, QD
     Route: 065
  23. ASPIRIN [Concomitant]
     Active Substance: ASPIRIN
     Dosage: 81 MILLIGRAM, QD
     Route: 065
  24. ASPIRIN [Concomitant]
     Active Substance: ASPIRIN
     Dosage: 81 MILLIGRAM, QD
  25. METOPROLOL [Concomitant]
     Active Substance: METOPROLOL
     Indication: Product used for unknown indication
     Dosage: 25 MILLIGRAM, BID
  26. METOPROLOL [Concomitant]
     Active Substance: METOPROLOL
     Dosage: 25 MILLIGRAM, BID
     Route: 065
  27. METOPROLOL [Concomitant]
     Active Substance: METOPROLOL
     Dosage: 25 MILLIGRAM, BID
     Route: 065
  28. METOPROLOL [Concomitant]
     Active Substance: METOPROLOL
     Dosage: 25 MILLIGRAM, BID
  29. CLOPIDOGREL [Concomitant]
     Active Substance: CLOPIDOGREL BISULFATE
     Indication: Product used for unknown indication
     Dosage: 75 MILLIGRAM, QD
  30. CLOPIDOGREL [Concomitant]
     Active Substance: CLOPIDOGREL BISULFATE
     Dosage: 75 MILLIGRAM, QD
     Route: 065
  31. CLOPIDOGREL [Concomitant]
     Active Substance: CLOPIDOGREL BISULFATE
     Dosage: 75 MILLIGRAM, QD
     Route: 065
  32. CLOPIDOGREL [Concomitant]
     Active Substance: CLOPIDOGREL BISULFATE
     Dosage: 75 MILLIGRAM, QD
  33. HEPARIN [Concomitant]
     Active Substance: HEPARIN SODIUM
     Indication: Product used for unknown indication
     Dosage: UNK, BID (5000 UNITS)
  34. HEPARIN [Concomitant]
     Active Substance: HEPARIN SODIUM
     Dosage: UNK, BID (5000 UNITS)
     Route: 058
  35. HEPARIN [Concomitant]
     Active Substance: HEPARIN SODIUM
     Dosage: UNK, BID (5000 UNITS)
     Route: 058
  36. HEPARIN [Concomitant]
     Active Substance: HEPARIN SODIUM
     Dosage: UNK, BID (5000 UNITS)
  37. ACETAMINOPHEN [Concomitant]
     Active Substance: ACETAMINOPHEN
     Indication: Product used for unknown indication
     Dosage: 650 MILLIGRAM, Q6H
  38. ACETAMINOPHEN [Concomitant]
     Active Substance: ACETAMINOPHEN
     Dosage: 650 MILLIGRAM, Q6H
     Route: 048
  39. ACETAMINOPHEN [Concomitant]
     Active Substance: ACETAMINOPHEN
     Dosage: 650 MILLIGRAM, Q6H
     Route: 048
  40. ACETAMINOPHEN [Concomitant]
     Active Substance: ACETAMINOPHEN
     Dosage: 650 MILLIGRAM, Q6H
  41. CLONIDINE [Concomitant]
     Active Substance: CLONIDINE
     Indication: Tachycardia
     Dosage: 0.1 MILLIGRAM, Q8H
  42. CLONIDINE [Concomitant]
     Active Substance: CLONIDINE
     Indication: Postoperative delirium
     Dosage: 0.1 MILLIGRAM, Q8H
     Route: 065
  43. CLONIDINE [Concomitant]
     Active Substance: CLONIDINE
     Dosage: 0.1 MILLIGRAM, Q8H
     Route: 065
  44. CLONIDINE [Concomitant]
     Active Substance: CLONIDINE
     Dosage: 0.1 MILLIGRAM, Q8H
  45. LORAZEPAM [Concomitant]
     Active Substance: LORAZEPAM
     Indication: Agitation postoperative
     Dosage: 2 MILLIGRAM, Q4H
  46. LORAZEPAM [Concomitant]
     Active Substance: LORAZEPAM
     Indication: Withdrawal syndrome
     Dosage: 2 MILLIGRAM, Q4H
  47. LORAZEPAM [Concomitant]
     Active Substance: LORAZEPAM
     Dosage: 2 MILLIGRAM, Q4H
     Route: 042
  48. LORAZEPAM [Concomitant]
     Active Substance: LORAZEPAM
     Dosage: 2 MILLIGRAM, Q4H
     Route: 042
  49. LORAZEPAM [Concomitant]
     Active Substance: LORAZEPAM
     Dosage: 3 MILLIGRAM, Q3H (EVERY THREE HOURS AS NEEDED)
  50. LORAZEPAM [Concomitant]
     Active Substance: LORAZEPAM
     Dosage: 3 MILLIGRAM, Q3H (EVERY THREE HOURS AS NEEDED)
  51. LORAZEPAM [Concomitant]
     Active Substance: LORAZEPAM
     Dosage: 3 MILLIGRAM, Q3H (EVERY THREE HOURS AS NEEDED)
     Route: 042
  52. LORAZEPAM [Concomitant]
     Active Substance: LORAZEPAM
     Dosage: 3 MILLIGRAM, Q3H (EVERY THREE HOURS AS NEEDED)
     Route: 042

REACTIONS (4)
  - Leukopenia [Recovered/Resolved]
  - Neutropenia [Recovered/Resolved]
  - Drug ineffective for unapproved indication [Unknown]
  - Off label use [Unknown]
